FAERS Safety Report 4867091-5 (Version None)
Quarter: 2005Q4

REPORT INFORMATION
  Report Type: 
  Country: None (occurrence: None)
  Receive Date: 20051222
  Receipt Date: 20051213
  Transmission Date: 20060501
  Serious: Yes (Death, Hospitalization)
  Sender: FDA-Public Use
  Company Number: 2005167331

PATIENT
  Age: 3 Month
  Sex: Female

DRUGS (3)
  1. DIPHENHYDRAMINE HCL [Suspect]
  2. LORAZEPAM [Suspect]
  3. PHENYTOIN [Suspect]

REACTIONS (11)
  - ASPHYXIA [None]
  - BRAIN OEDEMA [None]
  - CONJUNCTIVAL DISORDER [None]
  - CONTUSION [None]
  - OPTIC NERVE SHEATH HAEMORRHAGE [None]
  - PETECHIAE [None]
  - RETINAL HAEMORRHAGE [None]
  - SUBDURAL HAEMATOMA [None]
  - TIBIA FRACTURE [None]
  - TOXICOLOGIC TEST ABNORMAL [None]
  - VITREOUS HAEMORRHAGE [None]
